FAERS Safety Report 5977399-8 (Version None)
Quarter: 2008Q4

REPORT INFORMATION
  Report Type: 
  Country: None (occurrence: None)
  Receive Date: 20081203
  Receipt Date: 20081127
  Transmission Date: 20090506
  Serious: Yes (Hospitalization)
  Sender: FDA-Public Use
  Company Number: PHHY2008MX29988

PATIENT
  Age: 77 Year
  Sex: Female

DRUGS (1)
  1. DIOVAN HCT [Suspect]
     Indication: HYPERTENSION
     Dosage: 80/12.5 MG/ DAY
     Route: 048
     Dates: start: 20050901, end: 20071101

REACTIONS (1)
  - SPINAL OPERATION [None]
